FAERS Safety Report 10741616 (Version 19)
Quarter: 2020Q3

REPORT INFORMATION
  Report Type: Spontaneous
  Country: US (occurrence: US)
  Receive Date: 20150127
  Receipt Date: 20200810
  Transmission Date: 20201102
  Serious: Yes (Other)
  Sender: FDA-Public Use
  Company Number: US-PFIZER INC-2015031957

PATIENT
  Age: 56 Year
  Sex: Female
  Weight: 86 kg

DRUGS (22)
  1. OMEPRAZOLE. [Concomitant]
     Active Substance: OMEPRAZOLE
     Dosage: 40 MG, DAILY
     Dates: start: 20160202
  2. LYRICA [Suspect]
     Active Substance: PREGABALIN
     Dosage: 300 MG, 2X/DAY
     Route: 048
     Dates: start: 20161130
  3. KETOROLAC TROMETHAMINE. [Concomitant]
     Active Substance: KETOROLAC TROMETHAMINE
     Indication: PAIN
     Dosage: 10 MG, AS NEEDED (EVERY 6 HOURS PRN)
     Dates: start: 20160810
  4. VIT D [Concomitant]
     Active Substance: VITAMIN D NOS
     Dosage: 5000 IU, DAILY
     Dates: start: 20150805
  5. XANAX [Concomitant]
     Active Substance: ALPRAZOLAM
     Indication: ANXIETY
     Dosage: 1 MG, AS NEEDED
     Dates: start: 20140505
  6. LYRICA [Suspect]
     Active Substance: PREGABALIN
     Dosage: 100 MG, UNK
     Route: 048
  7. BACLOFEN. [Concomitant]
     Active Substance: BACLOFEN
     Dosage: 10 MG, 3X/DAY
     Dates: start: 20150316
  8. AMITRIPTYLINE HCL [Concomitant]
     Active Substance: AMITRIPTYLINE
     Dosage: 150 MG, 1X/DAY (AT BEDTIME)
     Dates: start: 20150209
  9. LYRICA [Suspect]
     Active Substance: PREGABALIN
     Dosage: 50 MG, UNK
     Route: 048
  10. SEROQUEL [Concomitant]
     Active Substance: QUETIAPINE FUMARATE
     Dosage: 300 MG, 2X/DAY
     Dates: start: 20150209
  11. AMLODIPINE BESYLATE. [Concomitant]
     Active Substance: AMLODIPINE BESYLATE
     Dosage: 5 MG, DAILY
     Dates: start: 20161114
  12. NYSTATIN/TRIAMCINOLONE [Concomitant]
     Active Substance: NYSTATIN\TRIAMCINOLONE
     Dosage: 100000?0.1 UNIT/GM? 1 CREAM TWICE EACH DAY
     Dates: start: 20151223
  13. LYRICA [Suspect]
     Active Substance: PREGABALIN
     Dosage: 200 MG, 2X/DAY (ONCE IN THE MORNING AND ONCE AT NIGHT)
     Route: 048
     Dates: start: 20140827
  14. PRAMOXINE?ZINC ACETATE [Concomitant]
     Indication: PRURITUS
     Dosage: UNK UNK, AS NEEDED
     Dates: start: 20150805
  15. AMITRIPTYLINE [Concomitant]
     Active Substance: AMITRIPTYLINE
     Dosage: 100 MG, DAILY (100 MG AT BEDTIME)
     Dates: start: 20111107
  16. LYRICA [Suspect]
     Active Substance: PREGABALIN
     Indication: NEUROPATHY PERIPHERAL
     Dosage: 100 MG, 2X/DAY (MORNING AND NIGHT)
     Route: 048
     Dates: start: 2011
  17. LYRICA [Suspect]
     Active Substance: PREGABALIN
     Indication: NERVE INJURY
     Dosage: UNK
     Route: 048
  18. LYRICA [Suspect]
     Active Substance: PREGABALIN
     Dosage: 75 MG, UNK
     Route: 048
  19. LYRICA [Suspect]
     Active Substance: PREGABALIN
     Dosage: 300 MG, 2X/DAY
     Route: 048
     Dates: start: 20140220
  20. SEROQUEL [Concomitant]
     Active Substance: QUETIAPINE FUMARATE
     Dosage: 100 MG, 2X/DAY
     Dates: start: 20111107
  21. LIDODERM [Concomitant]
     Active Substance: LIDOCAINE
     Indication: PAIN
     Dosage: AS NEEDED (APPLY UP TO 3 PATCHES TO AFFECTED AREA ON LEG EVERY 12 HOURS AS NEEDED)
     Dates: start: 20160810
  22. DRONABINOL. [Concomitant]
     Active Substance: DRONABINOL
     Dosage: 2.5 MG, DAILY
     Dates: start: 20150805

REACTIONS (28)
  - Back pain [Unknown]
  - Condition aggravated [Unknown]
  - Asthenia [Unknown]
  - Arthralgia [Unknown]
  - Agitation [Not Recovered/Not Resolved]
  - Nervous system disorder [Unknown]
  - Burning sensation [Unknown]
  - Increased appetite [Unknown]
  - Pruritus [Not Recovered/Not Resolved]
  - Pain [Unknown]
  - Gait disturbance [Unknown]
  - Formication [Unknown]
  - Pruritus [Not Recovered/Not Resolved]
  - Insomnia [Not Recovered/Not Resolved]
  - Condition aggravated [Not Recovered/Not Resolved]
  - Malaise [Not Recovered/Not Resolved]
  - Emotional disorder [Unknown]
  - Headache [Unknown]
  - Gallbladder disorder [Recovering/Resolving]
  - Drug ineffective [Unknown]
  - Fatigue [Unknown]
  - Pain in extremity [Unknown]
  - Contusion [Unknown]
  - Hypoaesthesia [Unknown]
  - Neuralgia [Not Recovered/Not Resolved]
  - Road traffic accident [Unknown]
  - Paraesthesia [Unknown]
  - Loss of personal independence in daily activities [Unknown]

NARRATIVE: CASE EVENT DATE: 2011
